FAERS Safety Report 18217583 (Version 1)
Quarter: 2020Q3

REPORT INFORMATION
  Report Type: Spontaneous
  Country: DE (occurrence: DE)
  Receive Date: 20200901
  Receipt Date: 20200901
  Transmission Date: 20201103
  Serious: Yes (Hospitalization)
  Sender: FDA-Public Use
  Company Number: DE-BAYER-2020-180971

PATIENT
  Age: 58 Year
  Sex: Male

DRUGS (8)
  1. RAMIPRIL. [Concomitant]
     Active Substance: RAMIPRIL
     Dosage: 5 MG, QD (5 MG, 1?0?0?0)
  2. HYDROMORPHON AL [Concomitant]
     Active Substance: HYDROMORPHONE HYDROCHLORIDE
     Dosage: 4 MG, BID (4 MG, 1?0?1?0)
  3. TORASEMID [Concomitant]
     Active Substance: TORSEMIDE
     Dosage: 10 MG, QD (10 MG, 1?0?0?0)
  4. LACTULOSE. [Concomitant]
     Active Substance: LACTULOSE
     Dosage: 1?1?1?0
  5. METFORMIN [Concomitant]
     Active Substance: METFORMIN HYDROCHLORIDE
     Dosage: 500 MG, QD (500 MG, 1?0?0?0)
  6. NEXAVAR [Suspect]
     Active Substance: SORAFENIB
     Dosage: 400 MG, BID (200 MG, 2?0?2?0)
  7. METAMIZOL [Concomitant]
     Active Substance: METAMIZOLE SODIUM
     Dosage: 500 MG, TID (500 MG, 1?1?1?0)
  8. FRESUBIN [CARBOHYDRATES NOS;FATTY ACIDS NOS;MINERALS NOS;PROTEINS [Concomitant]

REACTIONS (3)
  - Melaena [Recovering/Resolving]
  - General physical health deterioration [Recovering/Resolving]
  - Haematemesis [Recovering/Resolving]
